FAERS Safety Report 5829648-4 (Version None)
Quarter: 2008Q3

REPORT INFORMATION
  Report Type: 
  Country: None (occurrence: None)
  Receive Date: 20080731
  Receipt Date: 20080719
  Transmission Date: 20090109
  Serious: Yes (Other)
  Sender: FDA-Public Use
  Company Number: US-PFIZER INC-2008062179

PATIENT
  Sex: Male
  Weight: 123 kg

DRUGS (6)
  1. CHANTIX [Suspect]
     Indication: SMOKING CESSATION THERAPY
     Route: 048
  2. XANAX [Concomitant]
  3. VICODIN [Concomitant]
  4. CELEBREX [Concomitant]
  5. SIMVASTATIN [Concomitant]
  6. BENAZEPRIL HYDROCHLORIDE [Concomitant]

REACTIONS (2)
  - ANGER [None]
  - MENTAL IMPAIRMENT [None]
